FAERS Safety Report 5761891-5 (Version None)
Quarter: 2008Q2

REPORT INFORMATION
  Report Type: 
  Country: None (occurrence: None)
  Receive Date: 20080602
  Receipt Date: 20080519
  Transmission Date: 20081010
  Serious: Yes (Other)
  Sender: FDA-Public Use
  Company Number: 2008S1006551

PATIENT
  Age: 65 Year
  Sex: Male
  Weight: 74.5 kg

DRUGS (15)
  1. CLOZAPINE [Suspect]
     Indication: SCHIZOAFFECTIVE DISORDER
     Dosage: 300 MG; TWICE A DAY; ORAL
     Route: 048
     Dates: start: 19990101, end: 20080317
  2. NICOTINE (14 MG/DAY) [Suspect]
     Indication: SMOKER
     Dosage: 14 MG; DAILY; TRANSDERMAL
     Route: 062
     Dates: start: 20071001
  3. FOLIC ACID [Concomitant]
  4. LORATADINE [Concomitant]
  5. PROTONIX        /01263201/ [Concomitant]
  6. LEVOTHYROXINE SODIUM [Concomitant]
  7. KLONOPIN [Concomitant]
  8. LOVASTATIN [Concomitant]
  9. ALTACE [Concomitant]
  10. SEROQUEL [Concomitant]
  11. FLONASE [Concomitant]
  12. ADVAIR DISKUS 100/50 [Concomitant]
  13. SPIRIVA [Concomitant]
  14. NICOTINE /01033302/ [Concomitant]
  15. ALBUTEROL [Concomitant]

REACTIONS (3)
  - DRUG LEVEL INCREASED [None]
  - GRANULOCYTOPENIA [None]
  - LEUKOPENIA [None]
